FAERS Safety Report 8083393-6 (Version None)
Quarter: 2012Q1

REPORT INFORMATION
  Report Type: 
  Country: None (occurrence: None)
  Receive Date: 20120127
  Receipt Date: 20110222
  Transmission Date: 20120608
  Serious: Yes (Other)
  Sender: FDA-Public Use
  Company Number: US-ABBOTT-11P-163-0702851-00

PATIENT
  Sex: Male
  Weight: 106.69 kg

DRUGS (2)
  1. HUMIRA [Suspect]
     Indication: PSORIASIS
  2. HUMIRA [Suspect]
     Indication: PSORIATIC ARTHROPATHY
     Dates: start: 20101101, end: 20110203

REACTIONS (7)
  - PYREXIA [None]
  - NASOPHARYNGITIS [None]
  - HEADACHE [None]
  - PAIN [None]
  - COUGH [None]
  - DEHYDRATION [None]
  - ORAL HERPES [None]
